FAERS Safety Report 7224322-4 (Version None)
Quarter: 2011Q1

REPORT INFORMATION
  Report Type: 
  Country: None (occurrence: None)
  Receive Date: 20110113
  Receipt Date: 20110106
  Transmission Date: 20110831
  Serious: Yes (Hospitalization, Other)
  Sender: FDA-Public Use
  Company Number: US-PFIZER INC-2010108357

PATIENT
  Sex: Female

DRUGS (1)
  1. CHANTIX [Suspect]
     Indication: SMOKING CESSATION THERAPY
     Dosage: STARTER PACK THEN 1 MG
     Dates: start: 20071018, end: 20090623

REACTIONS (3)
  - SUICIDE ATTEMPT [None]
  - MAJOR DEPRESSION [None]
  - INTENTIONAL OVERDOSE [None]
